FAERS Safety Report 9135962 (Version 1)
Quarter: 2013Q1

REPORT INFORMATION
  Report Type: Spontaneous
  Country: US (occurrence: US)
  Receive Date: 20130304
  Receipt Date: 20130304
  Transmission Date: 20140127
  Serious: No
  Sender: FDA-Public Use
  Company Number: US-ABBOTT-12P-163-0977372-00

PATIENT
  Sex: Male

DRUGS (1)
  1. ANDROGEL [Suspect]

REACTIONS (1)
  - Rash [Recovered/Resolved]
